FAERS Safety Report 23999283 (Version 1)
Quarter: 2024Q2

REPORT INFORMATION
  Report Type: Spontaneous
  Country: US (occurrence: US)
  Receive Date: 20240621
  Receipt Date: 20240621
  Transmission Date: 20240715
  Serious: No
  Sender: FDA-Public Use
  Company Number: US-HIKMA PHARMACEUTICALS USA INC.-US-H14001-24-04032

PATIENT
  Age: 54 Year
  Sex: Female
  Weight: 65.76 kg

DRUGS (2)
  1. FLUTICASONE PROPIONATE [Suspect]
     Active Substance: FLUTICASONE PROPIONATE
     Indication: Upper-airway cough syndrome
     Dosage: TWO SPRAYS (100 MCG) IN EACH NOSTRIL, BID (MORNING AND NIGHT)
     Route: 045
     Dates: start: 20240313, end: 20240323
  2. FLUTICASONE PROPIONATE [Suspect]
     Active Substance: FLUTICASONE PROPIONATE
     Indication: Rhinorrhoea

REACTIONS (7)
  - Erythema [Recovered/Resolved]
  - Nasal discomfort [Recovered/Resolved]
  - Sneezing [Recovered/Resolved]
  - Expired product administered [Unknown]
  - Off label use [Unknown]
  - Inappropriate schedule of product administration [Unknown]
  - Incorrect dose administered [Unknown]

NARRATIVE: CASE EVENT DATE: 20240313
